FAERS Safety Report 22127786 (Version 3)
Quarter: 2023Q1

REPORT INFORMATION
  Report Type: Report from Study
  Country: BR (occurrence: BR)
  Receive Date: 20230323
  Receipt Date: 20230330
  Transmission Date: 20230418
  Serious: Yes (Other)
  Sender: FDA-Public Use
  Company Number: BR-CELLTRION INC.-2023BR005928

PATIENT

DRUGS (2)
  1. INFLIXIMAB [Suspect]
     Active Substance: INFLIXIMAB
     Indication: Ankylosing spondylitis
     Dosage: 4 AMPOULES EVERY 2 MONTHS
     Route: 042
     Dates: start: 20230117
  2. DESVENLAFAXINE [Concomitant]
     Active Substance: DESVENLAFAXINE
     Indication: Anxiety
     Dosage: 1 PILL A DAY (START: 2 YEARS AGO)
     Route: 048

REACTIONS (11)
  - Pain [Unknown]
  - Discomfort [Unknown]
  - Oral herpes [Unknown]
  - Candida infection [Unknown]
  - Mouth ulceration [Unknown]
  - Nausea [Unknown]
  - Malaise [Unknown]
  - Headache [Unknown]
  - Abdominal pain upper [Unknown]
  - Intentional dose omission [Unknown]
  - Therapy interrupted [Unknown]

NARRATIVE: CASE EVENT DATE: 20230117
